FAERS Safety Report 23909366 (Version 1)
Quarter: 2024Q2

REPORT INFORMATION
  Report Type: Spontaneous
  Country: US (occurrence: US)
  Receive Date: 20240528
  Receipt Date: 20240528
  Transmission Date: 20240716
  Serious: No
  Sender: FDA-Public Use
  Company Number: US-Calliditas-2024CAL00787

PATIENT
  Age: 57 Year
  Sex: Male

DRUGS (2)
  1. TARPEYO [Suspect]
     Active Substance: BUDESONIDE
     Indication: IgA nephropathy
     Route: 048
     Dates: start: 20230504
  2. FILSPARI [Suspect]
     Active Substance: SPARSENTAN
     Dosage: DECREASED TO 200 MG, THEN INCREASED TO 400 MG

REACTIONS (3)
  - Pain in extremity [Recovered/Resolved]
  - Swelling face [Unknown]
  - Laboratory test abnormal [Unknown]
